FAERS Safety Report 25803797 (Version 1)
Quarter: 2025Q3

REPORT INFORMATION
  Report Type: Spontaneous
  Country: US (occurrence: US)
  Receive Date: 20250915
  Receipt Date: 20250915
  Transmission Date: 20251021
  Serious: Yes (Other)
  Sender: PARI RESPIRATORY EQUIPMENT
  Company Number: US-PARI RESPIRATORY EQUIPMENT, INC.-2025PAR00068

PATIENT
  Age: 45 Year
  Sex: Female

DRUGS (2)
  1. KITABIS PAK [Suspect]
     Active Substance: TOBRAMYCIN
     Indication: Bronchiectasis
     Dosage: 300 MG, 2X/DAY
     Dates: start: 202508
  2. KITABIS PAK [Suspect]
     Active Substance: TOBRAMYCIN
     Indication: Respiratory disorder

REACTIONS (3)
  - Pericarditis [Not Recovered/Not Resolved]
  - Echocardiogram abnormal [Unknown]
  - Off label use [Not Recovered/Not Resolved]

NARRATIVE: CASE EVENT DATE: 20250801
